FAERS Safety Report 14482351 (Version 1)
Quarter: 2018Q1

REPORT INFORMATION
  Report Type: Not Available
  Country: US (occurrence: US)
  Receive Date: 20180202
  Receipt Date: 20180202
  Transmission Date: 20180509
  Serious: Yes (Other)
  Sender: FDA-Public Use
  Company Number: US-IHEALTH-2018-US-000740

PATIENT
  Age: 58 Year
  Sex: Female
  Weight: 88.45 kg

DRUGS (15)
  1. VITAMIN E [Concomitant]
     Active Substance: .ALPHA.-TOCOPHEROL
  2. CALCIUM [Concomitant]
     Active Substance: CALCIUM
  3. MAGNESIUM [Concomitant]
     Active Substance: MAGNESIUM
  4. ADAPTEN-ALL [Concomitant]
  5. GLUCOSAMINE/MSM [Concomitant]
  6. COENZYME Q10 [Concomitant]
     Active Substance: UBIDECARENONE
  7. B-COMPLEX VITAMIN [Concomitant]
  8. VITAMIN C [Concomitant]
     Active Substance: ASCORBIC ACID
  9. DIGESTIVE ENZYMES [Concomitant]
     Active Substance: UNSPECIFIED INGREDIENT
  10. VITAMIN B12 [Concomitant]
     Active Substance: CYANOCOBALAMIN
  11. VITAMIN D [Concomitant]
     Active Substance: CHOLECALCIFEROL
  12. AZO URINARY PAIN RELIEF MAXIMUM STRENGTH [Suspect]
     Active Substance: PHENAZOPYRIDINE HYDROCHLORIDE
     Dosage: 2 TABLETS TWICE DAILY 7 HOURS APART
     Route: 048
     Dates: start: 20180113, end: 20180113
  13. NATURE-THROID [Concomitant]
     Active Substance: THYROID, PORCINE
  14. FISH OIL [Concomitant]
     Active Substance: FISH OIL
  15. PROBIOTIC [Concomitant]
     Active Substance: PROBIOTICS NOS

REACTIONS (5)
  - Erythema [Recovering/Resolving]
  - Urticaria [Recovering/Resolving]
  - Palpitations [Recovering/Resolving]
  - Dyspnoea [Unknown]
  - Flushing [Recovering/Resolving]

NARRATIVE: CASE EVENT DATE: 20180113
